FAERS Safety Report 21890372 (Version 2)
Quarter: 2023Q1

REPORT INFORMATION
  Report Type: Other
  Country: ES (occurrence: ES)
  Receive Date: 20230120
  Receipt Date: 20230220
  Transmission Date: 20230417
  Serious: Yes (Hospitalization)
  Sender: FDA-Public Use
  Company Number: None

PATIENT

DRUGS (1)
  1. ONPATTRO [Suspect]
     Active Substance: PATISIRAN SODIUM
     Indication: Amyloidosis
     Dosage: 0.3 MILLIGRAM/KILOGRAM (20 MILLIGRAM)
     Route: 042
     Dates: start: 20221221, end: 20221221

REACTIONS (3)
  - Syncope [Recovered/Resolved]
  - Clonic convulsion [Recovered/Resolved]
  - Infusion related reaction [Recovered/Resolved]

NARRATIVE: CASE EVENT DATE: 20221221
